FAERS Safety Report 18147998 (Version 1)
Quarter: 2020Q3

REPORT INFORMATION
  Report Type: Spontaneous
  Country: US (occurrence: US)
  Receive Date: 20200813
  Receipt Date: 20200813
  Transmission Date: 20201103
  Serious: No
  Sender: FDA-Public Use
  Company Number: US-BIOMARINAP-US-2020-131263

PATIENT
  Age: 19 Year
  Sex: Male

DRUGS (3)
  1. IBUPROFEN. [Concomitant]
     Active Substance: IBUPROFEN
     Indication: INFLAMMATION
     Dosage: UNK, PRN
  2. BENADRYL [Concomitant]
     Active Substance: DIPHENHYDRAMINE HYDROCHLORIDE
     Indication: PRODUCT USED FOR UNKNOWN INDICATION
  3. VIMIZIM [Suspect]
     Active Substance: ELOSULFASE ALFA
     Indication: MUCOPOLYSACCHARIDOSIS IV
     Dosage: UNK UNK, QW
     Route: 042

REACTIONS (9)
  - Product dose omission issue [Unknown]
  - Headache [Unknown]
  - Dyspnoea [Unknown]
  - Pain [Not Recovered/Not Resolved]
  - Malaise [Unknown]
  - Oxygen saturation decreased [Unknown]
  - Suspected COVID-19 [Unknown]
  - Fatigue [Not Recovered/Not Resolved]
  - Body temperature increased [Unknown]

NARRATIVE: CASE EVENT DATE: 20200713
